FAERS Safety Report 24810544 (Version 4)
Quarter: 2025Q1

REPORT INFORMATION
  Report Type: Report from Study
  Country: CN (occurrence: CN)
  Receive Date: 20250106
  Receipt Date: 20250217
  Transmission Date: 20250409
  Serious: Yes (Other)
  Sender: PFIZER
  Company Number: CN-TAKEDA-2022TUS032389

PATIENT
  Age: 22 Year
  Sex: Male
  Weight: 75 kg

DRUGS (18)
  1. BRENTUXIMAB VEDOTIN [Suspect]
     Active Substance: BRENTUXIMAB VEDOTIN
     Indication: Hodgkin^s disease nodular sclerosis
     Dosage: 86 MG, EVERY 3 WEEKS
     Route: 041
     Dates: start: 20210930
  2. BRENTUXIMAB VEDOTIN [Suspect]
     Active Substance: BRENTUXIMAB VEDOTIN
     Dosage: 93.6 MG, EVERY 3 WEEKS
     Route: 041
     Dates: start: 20220302
  3. DOXORUBICIN HYDROCHLORIDE [Suspect]
     Active Substance: DOXORUBICIN HYDROCHLORIDE
     Indication: Lymphoma
     Dosage: 47 MG, 1X/DAY
     Route: 042
     Dates: start: 20210930, end: 20210930
  4. DOXORUBICIN HYDROCHLORIDE [Suspect]
     Active Substance: DOXORUBICIN HYDROCHLORIDE
     Dosage: 75 MG, 1X/DAY
     Route: 042
     Dates: start: 20220405, end: 20220405
  5. VINDESINE [Suspect]
     Active Substance: VINDESINE
     Indication: Lymphoma
     Dosage: 4 MG, 1X/DAY
     Route: 042
     Dates: start: 20210930, end: 20210930
  6. VINDESINE [Suspect]
     Active Substance: VINDESINE
     Dosage: 2 MG, 1X/DAY
     Route: 042
     Dates: start: 20220405, end: 20220405
  7. DACARBAZINE [Suspect]
     Active Substance: DACARBAZINE
     Indication: Lymphoma
     Dosage: 600 MG, 1X/DAY
     Route: 042
     Dates: start: 20210930, end: 20210930
  8. SULFAMETHOXAZOLE [Concomitant]
     Active Substance: SULFAMETHOXAZOLE
     Indication: Infection prophylaxis
     Dosage: UNK UNK, 1X/DAY
     Route: 048
     Dates: start: 202112, end: 202112
  9. SULFAMETHOXAZOLE [Concomitant]
     Active Substance: SULFAMETHOXAZOLE
     Indication: Prophylaxis
  10. LEUCOGEN [Concomitant]
     Active Substance: LEUCOGEN
     Indication: White blood cell count decreased
     Dosage: UNK UNK, 3X/DAY
     Route: 048
     Dates: start: 202112, end: 202112
  11. ACYCLOVIR [Concomitant]
     Active Substance: ACYCLOVIR
     Indication: Infection prophylaxis
     Dosage: UNK, 2X/DAY
     Route: 048
     Dates: start: 202112, end: 202112
  12. ACYCLOVIR [Concomitant]
     Active Substance: ACYCLOVIR
     Indication: Antiviral prophylaxis
  13. CEFUROXIME AXETIL [Concomitant]
     Active Substance: CEFUROXIME AXETIL
     Indication: Infection prophylaxis
     Dosage: UNK, 2X/DAY
     Route: 048
     Dates: start: 202112, end: 202112
  14. GLUTATHIONE [Concomitant]
     Active Substance: GLUTATHIONE
     Indication: Prophylaxis
     Dosage: UNK, 3X/DAY
     Route: 048
     Dates: start: 2021
  15. CEFACLOR [Concomitant]
     Active Substance: CEFACLOR
     Indication: Infection
     Dosage: UNK, 2X/DAY
     Route: 048
     Dates: start: 2021
  16. CEFACLOR [Concomitant]
     Active Substance: CEFACLOR
     Indication: Infection prophylaxis
  17. ISOTRETINOIN [Concomitant]
     Active Substance: ISOTRETINOIN
     Indication: Infection prophylaxis
     Route: 048
     Dates: start: 20211111
  18. FUSIDIC ACID [Concomitant]
     Active Substance: FUSIDIC ACID
     Indication: Infection prophylaxis
     Dosage: UNK, 1X/DAY
     Route: 065
     Dates: start: 20211111

REACTIONS (3)
  - Myelosuppression [Unknown]
  - Platelet count increased [Recovered/Resolved]
  - Off label use [Unknown]

NARRATIVE: CASE EVENT DATE: 20210930
